FAERS Safety Report 7459980-2 (Version None)
Quarter: 2011Q2

REPORT INFORMATION
  Report Type: 
  Country: None (occurrence: None)
  Receive Date: 20110505
  Receipt Date: 20110428
  Transmission Date: 20111010
  Serious: Yes (Other)
  Sender: FDA-Public Use
  Company Number: GB-ABBOTT-11P-167-0722374-00

PATIENT
  Age: 37 Year
  Sex: Male

DRUGS (1)
  1. HUMIRA [Suspect]
     Indication: PSORIASIS
     Dates: start: 20100101

REACTIONS (14)
  - EAR DISCOMFORT [None]
  - THROMBOSIS [None]
  - HEART RATE INCREASED [None]
  - NAUSEA [None]
  - AXILLARY PAIN [None]
  - LYMPHADENOPATHY [None]
  - TESTICULAR MASS [None]
  - GROIN PAIN [None]
  - FEELING HOT [None]
  - PHARYNGEAL OEDEMA [None]
  - HYPERAESTHESIA [None]
  - GENERAL PHYSICAL HEALTH DETERIORATION [None]
  - HAEMATOCHEZIA [None]
  - PHOTOPHOBIA [None]
